FAERS Safety Report 6259922-1 (Version None)
Quarter: 2009Q3

REPORT INFORMATION
  Report Type: 
  Country: None (occurrence: None)
  Receive Date: 20090708
  Receipt Date: 20090701
  Transmission Date: 20100115
  Serious: Yes (Other)
  Sender: FDA-Public Use
  Company Number: PHHY2009AT26568

PATIENT

DRUGS (1)
  1. ACLASTA [Suspect]

REACTIONS (1)
  - ARRHYTHMIA [None]
